FAERS Safety Report 7897096-1 (Version None)
Quarter: 2011Q4

REPORT INFORMATION
  Report Type: 
  Country: None (occurrence: None)
  Receive Date: 20111104
  Receipt Date: 20111104
  Transmission Date: 20120403
  Serious: Yes (Death)
  Sender: FDA-Public Use
  Company Number: None

PATIENT
  Sex: Male
  Weight: 70.3075 kg

DRUGS (1)
  1. RISPERIDONE [Suspect]
     Indication: DEMENTIA
     Dosage: 1 MG TWICE A DAY ORAL
     Route: 048
     Dates: start: 20110613, end: 20110601

REACTIONS (4)
  - AGITATION [None]
  - ANXIETY [None]
  - MYOCARDIAL INFARCTION [None]
  - CEREBROVASCULAR ACCIDENT [None]
